FAERS Safety Report 8811061 (Version 1)
Quarter: 2012Q4

REPORT INFORMATION
  Report Type: 
  Country: US (occurrence: US)
  Receive Date: 20120927
  Receipt Date: 20120927
  Transmission Date: 20130627
  Serious: Yes (Hospitalization)
  Sender: FDA-Public Use
  Company Number: PHEH2012US018447

PATIENT
  Age: 66 Year
  Sex: Female
  Weight: 96 kg

DRUGS (7)
  1. EXJADE [Suspect]
     Indication: IRON OVERLOAD
     Dosage: 2 DF, QD
     Route: 048
  2. PERCOCET [Concomitant]
     Dosage: 5.325 mg, UNK
  3. TYLENOL [Concomitant]
     Dosage: 325 mg, UNK
  4. STOOL SOFTENER [Concomitant]
     Dosage: 100 mg, UNK
  5. ZOFRAN [Concomitant]
     Dosage: 4 mg, UNK
  6. PROTONIX [Concomitant]
     Dosage: 20 mg, UNK
  7. CLARITIN [Concomitant]
     Dosage: 10 mg, UNK

REACTIONS (2)
  - Thrombosis [Recovered/Resolved]
  - Pulmonary oedema [Recovered/Resolved]
